FAERS Safety Report 8136240-8 (Version None)
Quarter: 2012Q1

REPORT INFORMATION
  Report Type: 
  Country: None (occurrence: None)
  Receive Date: 20120103
  Receipt Date: 20111121
  Transmission Date: 20120608
  Serious: No
  Sender: FDA-Public Use
  Company Number: AE-2011-002635

PATIENT
  Age: 51 Year
  Sex: Female
  Weight: 115.6672 kg

DRUGS (6)
  1. PROZAC [Concomitant]
  2. PEGASYS [Concomitant]
  3. ALBUTEROL INHALER (SALBUTAMOL) [Concomitant]
  4. INCIVEK [Suspect]
     Dosage: 2250 MG (750 MG,3 IN 1 D), ORAL
     Route: 048
     Dates: start: 20110909
  5. RIBAVIRIN [Concomitant]
  6. DEPAKOTE [Concomitant]

REACTIONS (3)
  - MOOD ALTERED [None]
  - MEMORY IMPAIRMENT [None]
  - FEELING ABNORMAL [None]
